FAERS Safety Report 12379467 (Version 1)
Quarter: 2016Q2

REPORT INFORMATION
  Report Type: Spontaneous
  Country: US (occurrence: US)
  Receive Date: 20160517
  Receipt Date: 20160517
  Transmission Date: 20160815
  Serious: No
  Sender: FDA-Public Use
  Company Number: US-TEIKOKU PHARMA USA-TPU2015-00394

PATIENT
  Age: 61 Year
  Sex: Male
  Weight: 106.69 kg

DRUGS (9)
  1. LIDODERM [Suspect]
     Active Substance: LIDOCAINE
     Indication: BACK PAIN
     Route: 061
     Dates: start: 2013
  2. LISINOPRIL. [Concomitant]
     Active Substance: LISINOPRIL
     Indication: BLOOD PRESSURE MEASUREMENT
     Route: 048
     Dates: start: 2009
  3. GABAPENTIN. [Concomitant]
     Active Substance: GABAPENTIN
     Indication: NEURALGIA
     Route: 048
  4. CLONIDINE. [Concomitant]
     Active Substance: CLONIDINE
     Indication: BLOOD PRESSURE MEASUREMENT
     Route: 048
     Dates: start: 2009
  5. LIDOCAINE 5% CREAM [Concomitant]
     Indication: BACK PAIN
     Route: 061
     Dates: start: 20150422, end: 20150501
  6. ASPIRIN. [Concomitant]
     Active Substance: ASPIRIN
     Indication: MYOCARDIAL INFARCTION
     Route: 048
     Dates: start: 2009
  7. METOPROLOL. [Concomitant]
     Active Substance: METOPROLOL
     Indication: BLOOD PRESSURE MEASUREMENT
     Route: 048
     Dates: start: 2009
  8. PRAVASTATIN [Concomitant]
     Active Substance: PRAVASTATIN\PRAVASTATIN SODIUM
     Indication: BLOOD CHOLESTEROL
     Route: 048
     Dates: start: 2009
  9. RANITIDINE. [Concomitant]
     Active Substance: RANITIDINE
     Indication: GASTRIC PH DECREASED
     Route: 048

REACTIONS (4)
  - Incorrect drug administration duration [Recovered/Resolved]
  - Suture insertion [Unknown]
  - Dizziness [Recovered/Resolved]
  - Accident at home [Recovered/Resolved]

NARRATIVE: CASE EVENT DATE: 20150801
